FAERS Safety Report 9467063 (Version 1)
Quarter: 2013Q3

REPORT INFORMATION
  Report Type: Spontaneous
  Country: US (occurrence: US)
  Receive Date: 20130820
  Receipt Date: 20130820
  Transmission Date: 20140515
  Serious: No
  Sender: FDA-Public Use
  Company Number: US-TEVA-427148USA

PATIENT
  Sex: 0

DRUGS (1)
  1. AMRIX [Suspect]

REACTIONS (2)
  - Amnesia [Unknown]
  - Somnolence [Unknown]
